FAERS Safety Report 9009219 (Version 1)
Quarter: 2013Q1

REPORT INFORMATION
  Report Type: Spontaneous
  Country: FR (occurrence: FR)
  Receive Date: 20130111
  Receipt Date: 20130111
  Transmission Date: 20140127
  Serious: Yes (Death)
  Sender: FDA-Public Use
  Company Number: FR-SANOFI-AVENTIS-2013SA001376

PATIENT
  Age: 65 Year
  Sex: Male

DRUGS (15)
  1. TAXOTERE [Suspect]
     Indication: PRODUCT USED FOR UNKNOWN INDICATION
     Route: 042
     Dates: start: 20120829, end: 20120829
  2. TAXOTERE [Suspect]
     Indication: PRODUCT USED FOR UNKNOWN INDICATION
     Route: 042
     Dates: start: 20120918, end: 20120918
  3. TAXOTERE [Suspect]
     Indication: PRODUCT USED FOR UNKNOWN INDICATION
     Route: 042
     Dates: start: 20121008, end: 20121008
  4. NEULASTA [Suspect]
     Indication: PRODUCT USED FOR UNKNOWN INDICATION
     Route: 058
     Dates: start: 20120903, end: 20121013
  5. FLUOROURACIL [Suspect]
     Indication: PRODUCT USED FOR UNKNOWN INDICATION
     Dosage: D1 TO D5
     Route: 042
     Dates: start: 20120829, end: 20121012
  6. CISPLATINE [Suspect]
     Indication: PRODUCT USED FOR UNKNOWN INDICATION
     Dosage: D1
     Route: 042
     Dates: start: 20120829, end: 20121008
  7. SOLUPRED [Concomitant]
  8. SOLUMEDROL [Concomitant]
  9. EMEND [Concomitant]
     Dosage: DOSE: 125 MG = D1 THEN 80 MG D2 AND D3
  10. ZOPHREN [Concomitant]
     Dosage: DOSE: 1 INJ AT D1 THEN 1 TAB AT D2 TO D5?STRENGTH: 8 MG
  11. XANAX [Concomitant]
     Dosage: DOSE: 0.25 MG D1 TO D5?STRENGTH: 0.25 MG
  12. FORLAX [Concomitant]
     Dosage: D1 TO D5
  13. DUROGESIC [Concomitant]
     Dosage: TRANSDERMAL PATCH?DOSE: 50 MCG/H PATCH
     Route: 062
  14. LEXOMIL [Concomitant]
  15. EXACYL [Concomitant]

REACTIONS (3)
  - Pulmonary fibrosis [Fatal]
  - Dyspnoea [Fatal]
  - Oxygen saturation decreased [Fatal]
